FAERS Safety Report 6497615-6 (Version None)
Quarter: 2009Q4

REPORT INFORMATION
  Report Type: 
  Country: None (occurrence: None)
  Receive Date: 20091215
  Receipt Date: 20091208
  Transmission Date: 20100525
  Serious: Yes (Death, Other)
  Sender: FDA-Public Use
  Company Number: US-BAYER-200942199GPV

PATIENT
  Age: 77 Year
  Sex: Male

DRUGS (4)
  1. FLUDARABINE PHOSPHATE [Suspect]
     Indication: CHRONIC LYMPHOCYTIC LEUKAEMIA
     Dosage: 1 CYCLE
     Dates: start: 20060101
  2. CYCLOPHOSPHAMIDE [Suspect]
     Indication: CHRONIC LYMPHOCYTIC LEUKAEMIA
     Dosage: 1 CYCLE
     Dates: start: 20060101
  3. RITUXIMAB [Suspect]
     Indication: CHRONIC LYMPHOCYTIC LEUKAEMIA
     Dosage: 1 CYCLE
     Dates: start: 20060101
  4. RITUXIMAB [Suspect]
     Dosage: 3 DOSES AT 3-WEEK INTERVALS

REACTIONS (9)
  - DYSARTHRIA [None]
  - FACIAL PALSY [None]
  - GAIT DISTURBANCE [None]
  - HEMIANOPIA [None]
  - JC VIRUS TEST POSITIVE [None]
  - MUSCULAR WEAKNESS [None]
  - NEUROPATHY PERIPHERAL [None]
  - PROGRESSIVE MULTIFOCAL LEUKOENCEPHALOPATHY [None]
  - SENSORY LOSS [None]
